FAERS Safety Report 9059373 (Version 1)
Quarter: 2013Q1

REPORT INFORMATION
  Report Type: Spontaneous
  Country: US (occurrence: US)
  Receive Date: 20130211
  Receipt Date: 20130211
  Transmission Date: 20140127
  Serious: Yes (Other)
  Sender: FDA-Public Use
  Company Number: CHPA2013US002824

PATIENT
  Age: 75 Year
  Sex: Female

DRUGS (3)
  1. MAALOX ADV MAXIMUM STRENGTH ANTACID/ANTIGAS [Suspect]
     Indication: MUSCULOSKELETAL PAIN
     Dosage: 3 TSP, PRN
     Route: 048
     Dates: start: 2010
  2. MAALOX ADV MAXIMUM STRENGTH ANTACID/ANTIGAS [Suspect]
     Dosage: 6 TSP, BID, PRN
     Route: 048
     Dates: start: 2010
  3. FOSAMAX [Suspect]
     Indication: OSTEOPENIA
     Dosage: UNK, UNK
     Route: 065
     Dates: start: 2008

REACTIONS (6)
  - Bone loss [Not Recovered/Not Resolved]
  - Tooth loss [Recovered/Resolved]
  - Therapeutic response unexpected [Unknown]
  - Off label use [Unknown]
  - Overdose [Unknown]
  - Expired drug administered [Unknown]
